FAERS Safety Report 10686355 (Version 2)
Quarter: 2015Q1

REPORT INFORMATION
  Report Type: Spontaneous
  Country: FR (occurrence: FR)
  Receive Date: 20141231
  Receipt Date: 20150113
  Transmission Date: 20150720
  Serious: Yes (Hospitalization)
  Sender: FDA-Public Use
  Company Number: FR-PFIZER INC-2014358415

PATIENT
  Sex: Male

DRUGS (2)
  1. ZOLOFT [Suspect]
     Active Substance: SERTRALINE HYDROCHLORIDE
     Dosage: UNK
     Route: 063
  2. ZOLOFT [Suspect]
     Active Substance: SERTRALINE HYDROCHLORIDE
     Indication: OBSESSIVE-COMPULSIVE DISORDER
     Dosage: 50 MG, UNK
     Route: 064

REACTIONS (9)
  - Hypotonia [Recovered/Resolved]
  - Exposure during breast feeding [Unknown]
  - Premature baby [Unknown]
  - Tremor [Recovered/Resolved]
  - Weight decreased [Recovered/Resolved]
  - Frequent bowel movements [Unknown]
  - Regurgitation [Recovered/Resolved]
  - Neonatal hypoxia [Unknown]
  - Maternal exposure during pregnancy [Unknown]

NARRATIVE: CASE EVENT DATE: 2014
